FAERS Safety Report 15632951 (Version 1)
Quarter: 2018Q4

REPORT INFORMATION
  Report Type: Spontaneous
  Country: FR (occurrence: FR)
  Receive Date: 20181119
  Receipt Date: 20181119
  Transmission Date: 20190205
  Serious: Yes (Hospitalization, Other)
  Sender: FDA-Public Use
  Company Number: FR-TEVA-2018-FR-975626

PATIENT
  Age: 67 Year
  Sex: Male
  Weight: 104 kg

DRUGS (16)
  1. DUOPLAVIN [Concomitant]
     Active Substance: ASPIRIN\CLOPIDOGREL
  2. METFORMINE [Concomitant]
     Active Substance: METFORMIN HYDROCHLORIDE
  3. TRULICITY [Concomitant]
     Active Substance: DULAGLUTIDE
  4. ADCETRIS [Suspect]
     Active Substance: BRENTUXIMAB VEDOTIN
     Indication: HODGKIN^S DISEASE
     Dosage: 1.8MG/KG
     Dates: start: 20180730, end: 20180730
  5. ZELITREX [Concomitant]
     Active Substance: VALACYCLOVIR HYDROCHLORIDE
  6. PROCORALAN [Concomitant]
     Active Substance: IVABRADINE
  7. NEUPOGEN [Concomitant]
     Active Substance: FILGRASTIM
  8. COVERAM [Suspect]
     Active Substance: AMLODIPINE\PERINDOPRIL
     Indication: HYPERTENSION
     Dosage: 1 DOSAGE FORMS DAILY;
     Route: 048
     Dates: end: 20180730
  9. TEMERITDUO [Concomitant]
     Active Substance: HYDROCHLOROTHIAZIDE\NEBIVOLOL HYDROCHLORIDE
  10. BACTRIM [Concomitant]
     Active Substance: SULFAMETHOXAZOLE\TRIMETHOPRIM
  11. POLARAMINE [Suspect]
     Active Substance: DEXCHLORPHENIRAMINE MALEATE
     Indication: PROPHYLAXIS
     Dates: start: 20180730, end: 20180730
  12. PARACETAMOL [Suspect]
     Active Substance: ACETAMINOPHEN
     Indication: PROPHYLAXIS
     Dates: start: 20180730, end: 20180730
  13. BENDAMUSTINE (CHLORHYDRATE DE) [Suspect]
     Active Substance: BENDAMUSTINE HYDROCHLORIDE
     Indication: HODGKIN^S DISEASE
     Dosage: 90MG/M2
     Dates: start: 20180730, end: 20180730
  14. SOLU-MEDROL [Suspect]
     Active Substance: METHYLPREDNISOLONE SODIUM SUCCINATE
     Indication: PROPHYLAXIS
     Dates: start: 20180730, end: 20180730
  15. ALLOPURINOL. [Concomitant]
     Active Substance: ALLOPURINOL
  16. TOUJEO [Concomitant]
     Active Substance: INSULIN GLARGINE

REACTIONS (4)
  - Acute kidney injury [Recovered/Resolved]
  - Malaise [Recovered/Resolved]
  - Product use in unapproved indication [Unknown]
  - Hyperthermia [Recovered/Resolved]

NARRATIVE: CASE EVENT DATE: 20180730
